FAERS Safety Report 8401174-8 (Version None)
Quarter: 2012Q2

REPORT INFORMATION
  Report Type: 
  Country: None (occurrence: None)
  Receive Date: 20120529
  Receipt Date: 20120529
  Transmission Date: 20120825
  Serious: Yes (Other)
  Sender: FDA-Public Use
  Company Number: None

PATIENT
  Sex: Male
  Weight: 72.7 kg

DRUGS (3)
  1. QUETIAPINE [Suspect]
     Indication: MAJOR DEPRESSION
  2. QUETIAPINE [Suspect]
     Indication: IRRITABLE BOWEL SYNDROME
  3. QUETIAPINE [Suspect]
     Indication: ANXIETY DISORDER

REACTIONS (2)
  - PRODUCT SUBSTITUTION ISSUE [None]
  - CONSTIPATION [None]
